FAERS Safety Report 4324822-0 (Version None)
Quarter: 2004Q1

REPORT INFORMATION
  Report Type: 
  Country: None (occurrence: None)
  Receive Date: 20040325
  Receipt Date: 20040325
  Transmission Date: 20041129
  Serious: Yes (Life-Threatening, Hospitalization)
  Sender: FDA-Public Use
  Company Number: None

PATIENT
  Age: 1 Day
  Sex: Male
  Weight: 3.1752 kg

DRUGS (1)
  1. STADOL [Suspect]
     Indication: PAIN
     Dosage: 2 MG ONCE IV
     Route: 042
     Dates: start: 20040120, end: 20040121

REACTIONS (9)
  - AREFLEXIA [None]
  - HEART RATE DECREASED [None]
  - HYPOREFLEXIA [None]
  - HYPOTONIA NEONATAL [None]
  - LOSS OF CONSCIOUSNESS [None]
  - MATERNAL DRUGS AFFECTING FOETUS [None]
  - NEONATAL DISORDER [None]
  - NEONATAL RESPIRATORY ARREST [None]
  - TOXICOLOGIC TEST ABNORMAL [None]
